FAERS Safety Report 13048328 (Version 1)
Quarter: 2016Q4

REPORT INFORMATION
  Report Type: Spontaneous
  Country: US (occurrence: US)
  Receive Date: 20161220
  Receipt Date: 20161220
  Transmission Date: 20170207
  Serious: No
  Sender: FDA-Public Use
  Company Number: None

PATIENT
  Age: 50 Year
  Sex: Female
  Weight: 58.5 kg

DRUGS (3)
  1. AFREZZA [Suspect]
     Active Substance: INSULIN HUMAN
     Indication: TYPE 1 DIABETES MELLITUS
     Dosage: OTHER STRENGTH:UNITS CARTRIDGE;QUANTITY:1 INHALATION(S);?
     Route: 055
     Dates: start: 20161110, end: 20161217
  2. TUEJEO [Concomitant]
  3. INSULIN [Concomitant]
     Active Substance: INSULIN NOS

REACTIONS (4)
  - Dyspnoea [None]
  - Burning sensation [None]
  - Cough [None]
  - Erythema [None]

NARRATIVE: CASE EVENT DATE: 20161217
